FAERS Safety Report 12710119 (Version 1)
Quarter: 2016Q3

REPORT INFORMATION
  Report Type: Spontaneous
  Country: JP (occurrence: JP)
  Receive Date: 20160902
  Receipt Date: 20160902
  Transmission Date: 20161109
  Serious: Yes (Other)
  Sender: FDA-Public Use
  Company Number: JP-BRISTOL-MYERS SQUIBB COMPANY-BMS-2016-070922

PATIENT
  Sex: Male

DRUGS (1)
  1. ABILIFY [Suspect]
     Active Substance: ARIPIPRAZOLE
     Indication: CONFUSIONAL STATE
     Dosage: 3 MG, UNK
     Route: 048

REACTIONS (4)
  - Insomnia [Unknown]
  - Product use issue [Unknown]
  - Suicidal ideation [Unknown]
  - Logorrhoea [Unknown]
